APPROVED DRUG PRODUCT: TRIPLE SULFAS
Active Ingredient: TRISULFAPYRIMIDINES (SULFADIAZINE;SULFAMERAZINE;SULFAMETHAZINE)
Strength: 167MG;167MG;167MG
Dosage Form/Route: TABLET;ORAL
Application: N006920 | Product #002
Applicant: LEDERLE LABORATORIES DIV AMERICAN CYANAMID CO
Approved: Approved Prior to Jan 1, 1982 | RLD: No | RS: No | Type: DISCN